FAERS Safety Report 25529009 (Version 1)
Quarter: 2025Q3

REPORT INFORMATION
  Report Type: Spontaneous
  Country: GB (occurrence: GB)
  Receive Date: 20250708
  Receipt Date: 20250708
  Transmission Date: 20251021
  Serious: Yes (Hospitalization)
  Sender: MYLAN
  Company Number: GB-MYLANLABS-2025M1056878

PATIENT
  Age: 27 Year
  Sex: Female

DRUGS (11)
  1. FENTANYL [Suspect]
     Active Substance: FENTANYL
     Indication: Epidural analgesia
  2. TRANEXAMIC ACID [Suspect]
     Active Substance: TRANEXAMIC ACID
     Indication: Epidural haemorrhage
  3. TRANEXAMIC ACID [Suspect]
     Active Substance: TRANEXAMIC ACID
     Indication: Arterial haemorrhage
  4. EPINEPHRINE [Suspect]
     Active Substance: EPINEPHRINE
     Indication: Arterial haemorrhage
  5. EPINEPHRINE [Suspect]
     Active Substance: EPINEPHRINE
     Indication: Epidural haemorrhage
  6. EPINEPHRINE [Suspect]
     Active Substance: EPINEPHRINE
     Indication: Epidural haemorrhage
  7. EPINEPHRINE [Suspect]
     Active Substance: EPINEPHRINE
     Indication: Arterial haemorrhage
  8. LIDOCAINE [Suspect]
     Active Substance: LIDOCAINE
     Indication: Epidural analgesia
  9. SALINE [Suspect]
     Active Substance: SODIUM CHLORIDE
     Indication: Anaesthesia procedure
  10. LEVOBUPIVACAINE [Suspect]
     Active Substance: LEVOBUPIVACAINE
     Indication: Epidural analgesia
  11. NITROUS OXIDE\OXYGEN [Suspect]
     Active Substance: NITROUS OXIDE\OXYGEN
     Indication: Analgesic therapy

REACTIONS (2)
  - Drug ineffective [Unknown]
  - Maternal exposure during delivery [Recovered/Resolved]
